FAERS Safety Report 9342411 (Version 1)
Quarter: 2013Q2

REPORT INFORMATION
  Report Type: Spontaneous
  Country: US (occurrence: US)
  Receive Date: 20130611
  Receipt Date: 20130611
  Transmission Date: 20140414
  Serious: No
  Sender: FDA-Public Use
  Company Number: US-009507513-1306USA001737

PATIENT
  Sex: Female

DRUGS (4)
  1. REBETOL [Suspect]
     Indication: HEPATITIS C
     Dosage: UNK
     Route: 048
     Dates: start: 20020101, end: 20020501
  2. REBETOL [Suspect]
     Dosage: UNK
     Route: 048
     Dates: start: 20130510
  3. PEGASYS [Suspect]
     Indication: HEPATITIS C
     Dosage: UNK
     Dates: start: 20020101, end: 20020501
  4. PEGASYS [Suspect]
     Dosage: UNK
     Dates: start: 20130510

REACTIONS (5)
  - Nausea [Unknown]
  - Fatigue [Unknown]
  - Rash [Unknown]
  - Myalgia [Unknown]
  - Drug ineffective [Unknown]
